FAERS Safety Report 4547117-9 (Version None)
Quarter: 2005Q1

REPORT INFORMATION
  Report Type: 
  Country: None (occurrence: None)
  Receive Date: 20050105
  Receipt Date: 20041222
  Transmission Date: 20050727
  Serious: Yes (Other)
  Sender: FDA-Public Use
  Company Number: 200412554BCC

PATIENT
  Age: 57 Year
  Sex: Male
  Weight: 122.4712 kg

DRUGS (2)
  1. ALEVE (CAPLET) [Suspect]
     Dosage: 440 MG, TID, ORAL
     Route: 048
     Dates: start: 20021001, end: 20040406
  2. ASPIRIN [Suspect]
     Dosage: 325 MG, TOTAL DAILY, ORAL
     Route: 048
     Dates: end: 20040406

REACTIONS (6)
  - BLADDER NEOPLASM [None]
  - BLOOD URINE PRESENT [None]
  - HAEMATOCHEZIA [None]
  - THROMBOSIS [None]
  - URINARY TRACT DISORDER [None]
  - URINARY TRACT OBSTRUCTION [None]
